FAERS Safety Report 23681195 (Version 1)
Quarter: 2024Q1

REPORT INFORMATION
  Report Type: Report from Study
  Country: JP (occurrence: JP)
  Receive Date: 20240328
  Receipt Date: 20240328
  Transmission Date: 20240410
  Serious: Yes (Other)
  Sender: FDA-Public Use
  Company Number: JP-RECORDATI RARE DISEASE INC.-2022001034

PATIENT

DRUGS (11)
  1. NEOPROFEN [Suspect]
     Active Substance: IBUPROFEN LYSINE
     Indication: Patent ductus arteriosus
     Dosage: 7.00 MILLIGRAM
     Route: 042
     Dates: start: 20190615, end: 20190615
  2. NEOPROFEN [Suspect]
     Active Substance: IBUPROFEN LYSINE
     Dosage: 3.50 MILLIGRAM
     Route: 042
     Dates: start: 20190618, end: 20190618
  3. NEOPROFEN [Suspect]
     Active Substance: IBUPROFEN LYSINE
     Dosage: 3.50 MILLIGRAM
     Route: 042
     Dates: start: 20190619, end: 20190619
  4. QVAR [Concomitant]
     Active Substance: BECLOMETHASONE DIPROPIONATE
     Indication: Chronic respiratory disease
     Dosage: UNK
     Route: 055
     Dates: start: 20190607, end: 20190705
  5. FUROSEMIDE [Concomitant]
     Active Substance: FUROSEMIDE
     Indication: Chronic respiratory disease
     Dosage: UNK
     Route: 048
     Dates: start: 20190610, end: 20190722
  6. SPIRONOLACTONE [Concomitant]
     Active Substance: SPIRONOLACTONE
     Indication: Chronic respiratory disease
     Dosage: UNK
     Route: 048
     Dates: start: 20190610, end: 20190722
  7. ALBUMIN HUMAN [Concomitant]
     Active Substance: ALBUMIN HUMAN
     Indication: Prophylaxis
     Dosage: UNK
     Route: 042
     Dates: start: 20190616, end: 20190619
  8. DOMININ [Concomitant]
     Indication: Hypotension
     Dosage: UNK
     Route: 042
     Dates: start: 20190618, end: 20190621
  9. DOBUTREX [Concomitant]
     Active Substance: DOBUTAMINE HYDROCHLORIDE
     Indication: Hypotension
     Dosage: UNK
     Route: 042
     Dates: start: 20190618, end: 20190621
  10. ERYTHROPOIETIN [Concomitant]
     Active Substance: ERYTHROPOIETIN
     Indication: Anaemia neonatal
     Dosage: UNK (INJECTION 750)
     Route: 058
     Dates: start: 20190618, end: 20190618
  11. HUMULIN N [Concomitant]
     Active Substance: INSULIN HUMAN
     Indication: Hyperglycaemia
     Dosage: UNK
     Route: 042
     Dates: start: 20190616, end: 20190619

REACTIONS (5)
  - Retinopathy of prematurity [Recovered/Resolved with Sequelae]
  - Hyperglycaemia [Recovered/Resolved]
  - Circulatory failure neonatal [Recovered/Resolved]
  - Hypotension [Recovered/Resolved]
  - Anaemia [Recovered/Resolved]

NARRATIVE: CASE EVENT DATE: 20190101
